FAERS Safety Report 9088531 (Version 2)
Quarter: 2013Q2

REPORT INFORMATION
  Report Type: Report from Study
  Country: BR (occurrence: BR)
  Receive Date: 20130201
  Receipt Date: 20130513
  Transmission Date: 20140414
  Serious: Yes (Other)
  Sender: FDA-Public Use
  Company Number: BR-ABBOTT-13P-020-1042874-00

PATIENT
  Age: 30 Year
  Sex: Female
  Weight: 56 kg

DRUGS (4)
  1. HUMIRA [Suspect]
     Indication: RHEUMATOID ARTHRITIS
     Route: 058
     Dates: start: 20120331
  2. TECNOMET [Concomitant]
     Indication: ARTHRITIS
     Route: 048
     Dates: start: 2004
  3. HUMAN INSULIN [Concomitant]
     Indication: DIABETES MELLITUS
     Dosage: 2 DAILY INJECTIONS
     Route: 058
     Dates: start: 1999
  4. REGULAR INSULIN [Concomitant]
     Indication: DIABETES MELLITUS
     Route: 058
     Dates: start: 1999

REACTIONS (2)
  - Endometriosis [Recovered/Resolved]
  - Pain [Unknown]
